FAERS Safety Report 14985522 (Version 1)
Quarter: 2018Q2

REPORT INFORMATION
  Report Type: Spontaneous
  Country: US (occurrence: US)
  Receive Date: 20180607
  Receipt Date: 20180607
  Transmission Date: 20180711
  Serious: No
  Sender: FDA-Public Use
  Company Number: US-ASTRAZENECA-2018SE72524

PATIENT
  Sex: Male
  Weight: 81.6 kg

DRUGS (3)
  1. SYMBICORT [Suspect]
     Active Substance: BUDESONIDE\FORMOTEROL FUMARATE DIHYDRATE
     Indication: ASTHMA
     Dosage: 160/4.5 MICROGRAMS 2 PUFFS 2 TIMES A DAY
     Route: 055
     Dates: start: 201805
  2. ASMANEX HFA [Concomitant]
     Active Substance: MOMETASONE FUROATE
  3. VENTOLIN [Concomitant]
     Active Substance: ALBUTEROL SULFATE
     Indication: DYSPNOEA
     Dates: start: 2014

REACTIONS (9)
  - Dyspnoea [Unknown]
  - Device malfunction [Unknown]
  - Productive cough [Unknown]
  - Chest discomfort [Unknown]
  - Hyperventilation [Recovered/Resolved]
  - Wrong technique in product usage process [Unknown]
  - Visual acuity reduced [Unknown]
  - Abdominal discomfort [Unknown]
  - Intentional product misuse [Unknown]
